FAERS Safety Report 4470830-9 (Version None)
Quarter: 2004Q4

REPORT INFORMATION
  Report Type: 
  Country: None (occurrence: None)
  Receive Date: 20041006
  Receipt Date: 20041006
  Transmission Date: 20050328
  Serious: Yes (Life-Threatening, Hospitalization, Other)
  Sender: FDA-Public Use
  Company Number: None

PATIENT
  Sex: Female
  Weight: 67.1324 kg

DRUGS (2)
  1. HUMIRA [Suspect]
     Indication: RHEUMATOID ARTHRITIS
     Dosage: 40 MG   Q2W   SUBCUTANEOU
     Route: 058
     Dates: start: 20030911, end: 20040630
  2. METHOTREXATE [Suspect]
     Dosage: 10 MG   QW   ORAL
     Route: 048
     Dates: start: 20010601, end: 20040630

REACTIONS (4)
  - ANGIOIMMUNOBLASTIC T-CELL LYMPHOMA [None]
  - DIARRHOEA [None]
  - RASH [None]
  - WEIGHT DECREASED [None]
